FAERS Safety Report 5100704-1 (Version None)
Quarter: 2006Q3

REPORT INFORMATION
  Report Type: 
  Country: None (occurrence: None)
  Receive Date: 20060906
  Receipt Date: 20060821
  Transmission Date: 20061208
  Serious: Yes (Death)
  Sender: FDA-Public Use
  Company Number: S06-FRA-02693-01

PATIENT
  Age: 41 Year
  Sex: Male
  Weight: 68 kg

DRUGS (2)
  1. SEROPRAM (CITALOPRAM HYDROBROMIDE) [Suspect]
     Indication: DEPRESSION
     Dosage: 20 MG QD PO
     Route: 048
     Dates: start: 20060608, end: 20060609
  2. LEXOMIL (BROMAZEPAM) [Concomitant]

REACTIONS (2)
  - COMPLETED SUICIDE [None]
  - INJURY ASPHYXIATION [None]
